FAERS Safety Report 6188831-1 (Version None)
Quarter: 2009Q2

REPORT INFORMATION
  Report Type: 
  Country: None (occurrence: None)
  Receive Date: 20090513
  Receipt Date: 20090501
  Transmission Date: 20091009
  Serious: Yes (Other)
  Sender: FDA-Public Use
  Company Number: CA-PFIZER INC-2008032820

PATIENT
  Age: 50 Year

DRUGS (2)
  1. CHAMPIX [Suspect]
     Indication: SMOKING CESSATION THERAPY
     Dosage: 1 MG, 1X/DAY
     Dates: start: 20071018
  2. NAPROXEN AND NAPROXEN SODIUM [Suspect]
     Dosage: UNK

REACTIONS (6)
  - BACK PAIN [None]
  - FEELING ABNORMAL [None]
  - HOT FLUSH [None]
  - HYPERSENSITIVITY [None]
  - MAJOR DEPRESSION [None]
  - PHARYNGEAL OEDEMA [None]
